FAERS Safety Report 5956892-8 (Version None)
Quarter: 2008Q4

REPORT INFORMATION
  Report Type: 
  Country: None (occurrence: None)
  Receive Date: 20081106
  Receipt Date: 20080702
  Transmission Date: 20090506
  Serious: Yes (Life-Threatening, Hospitalization, Other)
  Sender: FDA-Public Use
  Company Number: US200702001858

PATIENT
  Age: 40 Year
  Sex: Female

DRUGS (21)
  1. PERMAX [Suspect]
     Indication: RESTLESS LEGS SYNDROME
     Dosage: 0.075 MG, DAILY (1/D)
     Dates: start: 19980414, end: 19990620
  2. PROZAC [Suspect]
     Indication: DEPRESSION
     Dosage: 1 D/F
     Dates: start: 19960101, end: 19960815
  3. MIRAPEX [Concomitant]
  4. PREDNISONE [Concomitant]
  5. XANAX [Concomitant]
  6. NARBALEK (CALCIUM PANTOTHENATE, FERROUS FUMARATE, MAGNESIUM ASPARTATE, [Concomitant]
  7. ULTRAM [Concomitant]
  8. CLARITIN-D [Concomitant]
  9. FIORICET [Concomitant]
  10. ELAVIL [Concomitant]
  11. VIOXX [Concomitant]
  12. EFFEXOR [Concomitant]
  13. ALPRAZOLAM [Concomitant]
  14. FLONASE [Concomitant]
  15. CLINDAMYCIN HYDROCHLORIDE [Concomitant]
  16. VI-Q-TUSS (GUAIFENSIN, HYDROCODONE BITARATE) [Concomitant]
  17. BACTROBAN CREAM (MUPIROCIN CALCIUM) [Concomitant]
  18. NORGESIC /USA/ (ACETYLSALICYLIC ACID, CAFFEINE, ORPHENADRINE CITRATE) [Concomitant]
  19. KLONOPIN [Concomitant]
  20. MIDRIN (DICHLORALPHENAZONE, ISOMETHEPTENE, PARACETAMOL) [Concomitant]
  21. PAXIL [Concomitant]

REACTIONS (34)
  - ACANTHOMA [None]
  - ATRIOVENTRICULAR BLOCK COMPLETE [None]
  - BRONCHITIS [None]
  - CARDIAC FAILURE CONGESTIVE [None]
  - CAROTID BRUIT [None]
  - CERVICAL CYST [None]
  - CHRONIC FATIGUE SYNDROME [None]
  - CONJUNCTIVAL HAEMORRHAGE [None]
  - CORONARY ARTERY DISEASE [None]
  - CYST [None]
  - DEPRESSION [None]
  - DIZZINESS [None]
  - EPICONDYLITIS [None]
  - HEADACHE [None]
  - HEPATITIS CHOLESTATIC [None]
  - HOT FLUSH [None]
  - HYPERLIPIDAEMIA [None]
  - INSOMNIA [None]
  - KERATOSIS PILARIS [None]
  - MENISCUS LESION [None]
  - MENSTRUATION IRREGULAR [None]
  - MITRAL VALVE STENOSIS [None]
  - NASAL DISCOMFORT [None]
  - OCCIPITAL NEURALGIA [None]
  - OSTEOARTHRITIS [None]
  - PNEUMONIA [None]
  - PULMONARY HYPERTENSION [None]
  - RESTLESS LEGS SYNDROME [None]
  - ROAD TRAFFIC ACCIDENT [None]
  - SUICIDAL IDEATION [None]
  - TENDONITIS [None]
  - TRICUSPID VALVE STENOSIS [None]
  - URINARY INCONTINENCE [None]
  - WHIPLASH INJURY [None]
